FAERS Safety Report 13633157 (Version 1)
Quarter: 2017Q2

REPORT INFORMATION
  Report Type: Spontaneous
  Country: US (occurrence: US)
  Receive Date: 20170531
  Receipt Date: 20170531
  Transmission Date: 20170830
  Serious: No
  Sender: FDA-Public Use
  Company Number: US-ASTELLAS-1513461

PATIENT
  Sex: Male

DRUGS (10)
  1. BETA GLUCAN [Concomitant]
     Active Substance: BETA GLUCAN
  2. CURCUMIN [Concomitant]
     Active Substance: CURCUMIN
  3. TARCEVA [Suspect]
     Active Substance: ERLOTINIB HYDROCHLORIDE
     Indication: LUNG NEOPLASM MALIGNANT
     Route: 048
     Dates: start: 2014
  4. TRIAMCINOLONE [Concomitant]
     Active Substance: TRIAMCINOLONE
  5. MILK THISTLE [Concomitant]
     Active Substance: MILK THISTLE
  6. TEA [Concomitant]
     Active Substance: TEA LEAF
  7. VITAMIN C [Concomitant]
     Active Substance: ASCORBIC ACID
  8. GINSENG [Concomitant]
     Active Substance: ASIAN GINSENG
  9. ASPIRIN. [Concomitant]
     Active Substance: ASPIRIN
     Route: 065
  10. GARLIC. [Concomitant]
     Active Substance: GARLIC

REACTIONS (5)
  - Dry skin [Not Recovered/Not Resolved]
  - Fatigue [Not Recovered/Not Resolved]
  - Chest pain [Not Recovered/Not Resolved]
  - Dermatitis acneiform [Not Recovered/Not Resolved]
  - Rash [Not Recovered/Not Resolved]
